FAERS Safety Report 21830849 (Version 2)
Quarter: 2023Q2

REPORT INFORMATION
  Report Type: Spontaneous
  Country: TR (occurrence: TR)
  Receive Date: 20230106
  Receipt Date: 20230531
  Transmission Date: 20230721
  Serious: Yes (Other)
  Sender: FDA-Public Use
  Company Number: TR-AMERICAN REGENT INC-2022003672

PATIENT
  Age: 57 Year
  Sex: Female
  Weight: 65 kg

DRUGS (4)
  1. FERINJECT [Suspect]
     Active Substance: FERRIC CARBOXYMALTOSE
     Indication: Product used for unknown indication
     Dosage: 500 MILLIGRAM, 1 IN 1 WEEK FOR 1 MONTH (4 DOSES)
     Route: 042
  2. FERINJECT [Suspect]
     Active Substance: FERRIC CARBOXYMALTOSE
     Dosage: 500 MILLIGRAM, 1 IN 1 WEEK FOR 1 MONTH (4 DOSES)
     Route: 042
  3. FERINJECT [Suspect]
     Active Substance: FERRIC CARBOXYMALTOSE
     Dosage: 500 MILLIGRAM, 1 IN 1 WEEK FOR 1 MONTH (4 DOSES)
     Route: 042
  4. FERINJECT [Suspect]
     Active Substance: FERRIC CARBOXYMALTOSE
     Dosage: 500 MILLIGRAM, 1 IN 1 WEEK FOR 1 MONTH (4 DOSES)
     Route: 042

REACTIONS (1)
  - Haemochromatosis [Recovered/Resolved]

NARRATIVE: CASE EVENT DATE: 20221129
